FAERS Safety Report 24534609 (Version 1)
Quarter: 2024Q4

REPORT INFORMATION
  Report Type: Report from Study
  Country: US (occurrence: US)
  Receive Date: 20241022
  Receipt Date: 20241022
  Transmission Date: 20250114
  Serious: Yes (Other)
  Sender: JAZZ
  Company Number: US-JAZZ PHARMACEUTICALS-2023-US-023163

PATIENT
  Sex: Female

DRUGS (3)
  1. SODIUM OXYBATE [Suspect]
     Active Substance: SODIUM OXYBATE
     Indication: Narcolepsy
     Dosage: 3.5 GRAM, BID
  2. FDGARD [Concomitant]
     Indication: Product used for unknown indication
     Dosage: UNK
     Dates: start: 20191101
  3. COLACE [Concomitant]
     Active Substance: DOCUSATE SODIUM
     Indication: Product used for unknown indication
     Dosage: 0000
     Dates: start: 20201101

REACTIONS (2)
  - Crohn^s disease [Unknown]
  - Intentional dose omission [Unknown]
